FAERS Safety Report 19664753 (Version 2)
Quarter: 2021Q4

REPORT INFORMATION
  Report Type: Spontaneous
  Country: DE (occurrence: DE)
  Receive Date: 20210806
  Receipt Date: 20211026
  Transmission Date: 20220304
  Serious: Yes (Other)
  Sender: FDA-Public Use
  Company Number: DE-ORGANON-O2107DEU001518

PATIENT
  Age: 21 Year
  Sex: Male

DRUGS (12)
  1. ETORICOXIB [Suspect]
     Active Substance: ETORICOXIB
     Indication: Hodgkin^s disease
     Dosage: 60 MILLIGRAM, ONCE A DAY
     Route: 048
  2. ETORICOXIB [Suspect]
     Active Substance: ETORICOXIB
     Indication: Off label use
  3. EVEROLIMUS [Suspect]
     Active Substance: EVEROLIMUS
     Indication: Hodgkin^s disease
     Dosage: 15 MILLIGRAM, ONCE A DAY
     Route: 048
  4. EVEROLIMUS [Suspect]
     Active Substance: EVEROLIMUS
     Indication: Off label use
  5. PIOGLITAZONE [Suspect]
     Active Substance: PIOGLITAZONE
     Indication: Hodgkin^s disease
     Dosage: 45 MILLIGRAM, ONCE A DAY
     Route: 048
  6. PIOGLITAZONE [Suspect]
     Active Substance: PIOGLITAZONE
     Indication: Off label use
  7. DEXAMETHASONE [Suspect]
     Active Substance: DEXAMETHASONE
     Indication: Hodgkin^s disease
     Dosage: 0.5 MILLIGRAM, ONCE A DAY
     Route: 048
  8. DEXAMETHASONE [Suspect]
     Active Substance: DEXAMETHASONE
     Indication: Off label use
  9. DEXAMETHASONE [Suspect]
     Active Substance: DEXAMETHASONE
     Indication: Hodgkin^s disease
  10. TROFOSFAMIDE [Suspect]
     Active Substance: TROFOSFAMIDE
     Indication: Hodgkin^s disease
     Dosage: 50 MILLIGRAM, ONCE A DAY
     Route: 065
  11. TROFOSFAMIDE [Suspect]
     Active Substance: TROFOSFAMIDE
     Indication: Off label use
  12. TREOSULFAN [Suspect]
     Active Substance: TREOSULFAN
     Indication: Hodgkin^s disease
     Dosage: 250 MILLIGRAM, ONCE A DAY
     Route: 048

REACTIONS (5)
  - Product use in unapproved indication [Unknown]
  - Pneumonia bacterial [Unknown]
  - Haematotoxicity [Unknown]
  - Sinusitis [Unknown]
  - Off label use [Unknown]
